FAERS Safety Report 20120736 (Version 1)
Quarter: 2021Q4

REPORT INFORMATION
  Report Type: Spontaneous
  Country: US (occurrence: None)
  Receive Date: 20211126
  Receipt Date: 20211126
  Transmission Date: 20220303
  Serious: Yes (Other)
  Sender: FDA-Public Use
  Company Number: None

PATIENT
  Age: 65 Year
  Sex: Female
  Weight: 45 kg

DRUGS (15)
  1. CAPECITABINE [Suspect]
     Active Substance: CAPECITABINE
     Indication: Cholangiocarcinoma
     Dosage: OTHER FREQUENCY : QD X14 DAYS, 7 OFF;?
     Route: 048
     Dates: start: 20211013, end: 20211126
  2. MAGNESIUM ASPARTATE 615MG [Concomitant]
  3. VITAMINS [Concomitant]
     Active Substance: VITAMINS
  4. IBUPROFEN [Concomitant]
     Active Substance: IBUPROFEN
  5. POTASSIUM CHLORIDE [Concomitant]
     Active Substance: POTASSIUM CHLORIDE
  6. FERROUS SULFATE [Concomitant]
     Active Substance: FERROUS SULFATE
  7. LIDOCAINE-PRILOCAINE 2.5-2.5% [Concomitant]
  8. VISCOUS LIDOCAINE/DIPHENHYDRAMINE/MAG ALM HYDROXIDE [Concomitant]
  9. MEGESTROL ACETATE [Concomitant]
     Active Substance: MEGESTROL ACETATE
  10. ONDANSETRON [Concomitant]
     Active Substance: ONDANSETRON
  11. OXYCODONE 10MG AND 20MG [Concomitant]
  12. PROCHLORPERAZINE 10MG [Concomitant]
  13. GABAPENTIN [Concomitant]
     Active Substance: GABAPENTIN
  14. ASPIRIN [Concomitant]
     Active Substance: ASPIRIN
  15. CANNABIS SATIVA SUBSP. INDICA TOP [Concomitant]
     Active Substance: CANNABIS SATIVA SUBSP. INDICA TOP

REACTIONS (1)
  - Hospice care [None]

NARRATIVE: CASE EVENT DATE: 20211126
